FAERS Safety Report 25076915 (Version 1)
Quarter: 2025Q1

REPORT INFORMATION
  Report Type: Spontaneous
  Country: IN (occurrence: IN)
  Receive Date: 20250314
  Receipt Date: 20250314
  Transmission Date: 20250408
  Serious: Yes (Hospitalization, Other)
  Sender: NOVITIUM PHARMA
  Company Number: IN-NOVITIUMPHARMA-2025INNVP00637

PATIENT
  Age: 35 Year
  Sex: Male

DRUGS (2)
  1. DICYCLOMINE HYDROCHLORIDE [Suspect]
     Active Substance: DICYCLOMINE HYDROCHLORIDE
     Indication: Analgesic therapy
  2. ACETAMINOPHEN [Concomitant]
     Active Substance: ACETAMINOPHEN
     Indication: Analgesic therapy

REACTIONS (5)
  - Drug abuse [Unknown]
  - Drug dependence [Unknown]
  - Decreased appetite [Unknown]
  - Sleep disorder [Unknown]
  - Dizziness [Unknown]
